FAERS Safety Report 11894011 (Version 2)
Quarter: 2016Q1

REPORT INFORMATION
  Report Type: Spontaneous
  Country: US (occurrence: US)
  Receive Date: 20160107
  Receipt Date: 20160126
  Transmission Date: 20160526
  Serious: Yes (Hospitalization, Other)
  Sender: FDA-Public Use
  Company Number: US-BEH-2015057406

PATIENT
  Age: 72 Year
  Sex: Female
  Weight: 115 kg

DRUGS (30)
  1. ZEMAIRA [Suspect]
     Active Substance: .ALPHA.1-PROTEINASE INHIBITOR HUMAN
     Indication: HYPOGAMMAGLOBULINAEMIA
     Route: 042
     Dates: start: 20140630
  2. ALPRAZOLAM. [Concomitant]
     Active Substance: ALPRAZOLAM
  3. ZEMAIRA [Suspect]
     Active Substance: .ALPHA.1-PROTEINASE INHIBITOR HUMAN
     Indication: ALPHA-1 ANTI-TRYPSIN DEFICIENCY
     Dosage: 984 MG/VL
     Route: 042
     Dates: start: 20140630
  4. MAGNESIUM [Concomitant]
     Active Substance: MAGNESIUM
  5. PROMETHAZINE [Concomitant]
     Active Substance: PROMETHAZINE\PROMETHAZINE HYDROCHLORIDE
  6. CETIRIZINE [Concomitant]
     Active Substance: CETIRIZINE HYDROCHLORIDE
  7. BUDESONIDE. [Concomitant]
     Active Substance: BUDESONIDE
  8. WARFARIN [Concomitant]
     Active Substance: WARFARIN
  9. SPIRIVA [Concomitant]
     Active Substance: TIOTROPIUM BROMIDE MONOHYDRATE
  10. CARIMUNE [Concomitant]
     Active Substance: HUMAN IMMUNOGLOBULIN G
  11. PREDNISONE. [Concomitant]
     Active Substance: PREDNISONE
  12. EPIPEN [Concomitant]
     Active Substance: EPINEPHRINE
  13. DOXYCYCLINE. [Concomitant]
     Active Substance: DOXYCYCLINE
  14. XANAX [Concomitant]
     Active Substance: ALPRAZOLAM
  15. FUROSEMIDE. [Concomitant]
     Active Substance: FUROSEMIDE
  16. FLUOXETINE [Concomitant]
     Active Substance: FLUOXETINE HYDROCHLORIDE
  17. PRAVASTATIN [Concomitant]
     Active Substance: PRAVASTATIN\PRAVASTATIN SODIUM
  18. KLOR-CON [Concomitant]
     Active Substance: POTASSIUM CHLORIDE
  19. SPIRONOLACTONE. [Concomitant]
     Active Substance: SPIRONOLACTONE
  20. ACETAMINOPHEN. [Concomitant]
     Active Substance: ACETAMINOPHEN
  21. SODIUM CHLORIDE. [Concomitant]
     Active Substance: SODIUM CHLORIDE
  22. STERILE WATER [Concomitant]
     Active Substance: WATER
  23. SINGULAIR [Concomitant]
     Active Substance: MONTELUKAST SODIUM
  24. OXYGEN. [Concomitant]
     Active Substance: OXYGEN
  25. ESTER-C [Concomitant]
     Active Substance: CALCIUM\VITAMINS
  26. DIPHENHYDRAMINE. [Concomitant]
     Active Substance: DIPHENHYDRAMINE
  27. LEVOFLOXACIN. [Concomitant]
     Active Substance: LEVOFLOXACIN
  28. DILTIAZEM [Concomitant]
     Active Substance: DILTIAZEM
  29. LEVOTHYROXINE. [Concomitant]
     Active Substance: LEVOTHYROXINE
  30. GUAIFENESIN. [Concomitant]
     Active Substance: GUAIFENESIN

REACTIONS (10)
  - Hypoaesthesia [Unknown]
  - Urinary incontinence [Unknown]
  - Visual impairment [Unknown]
  - Dyspnoea [Unknown]
  - Hypertension [Unknown]
  - Oedema peripheral [Unknown]
  - Dyspnoea exertional [Unknown]
  - Chest pain [Unknown]
  - Oxygen saturation decreased [Unknown]
  - Chronic obstructive pulmonary disease [Unknown]

NARRATIVE: CASE EVENT DATE: 20151225
